FAERS Safety Report 6202936-8 (Version None)
Quarter: 2009Q2

REPORT INFORMATION
  Report Type: 
  Country: None (occurrence: None)
  Receive Date: 20090520
  Receipt Date: 20090507
  Transmission Date: 20091009
  Serious: Yes (Life-Threatening)
  Sender: FDA-Public Use
  Company Number: 8043436

PATIENT
  Age: 17 Year
  Sex: Female
  Weight: 58 kg

DRUGS (4)
  1. KEPPRA [Suspect]
     Indication: GRAND MAL CONVULSION
     Dosage: 750 MG 2/D PO
     Route: 048
     Dates: start: 20080601, end: 20080901
  2. KEPPRA [Suspect]
     Indication: GRAND MAL CONVULSION
     Dosage: 1500 MG 2/D PO
     Route: 048
     Dates: start: 20080901, end: 20081101
  3. LAMOTRIGINE [Concomitant]
  4. VALPROATE SODIUM [Concomitant]

REACTIONS (4)
  - DEPRESSION [None]
  - GRAND MAL CONVULSION [None]
  - PSYCHIATRIC SYMPTOM [None]
  - SELF ESTEEM DECREASED [None]
